FAERS Safety Report 6880296-7 (Version None)
Quarter: 2010Q3

REPORT INFORMATION
  Report Type: 
  Country: None (occurrence: None)
  Receive Date: 20100728
  Receipt Date: 20100720
  Transmission Date: 20110219
  Serious: Yes (Other)
  Sender: FDA-Public Use
  Company Number: US-SANOFI-AVENTIS-2010SA042611

PATIENT
  Age: 50 Year
  Sex: Male

DRUGS (5)
  1. LANTUS [Suspect]
     Indication: TYPE 2 DIABETES MELLITUS
     Dosage: DOSE:36 UNIT(S)
     Route: 058
     Dates: start: 20070101
  2. OPTICLICK [Suspect]
     Dates: start: 20070101
  3. HUMALOG [Suspect]
     Indication: TYPE 2 DIABETES MELLITUS
     Dosage: SLIDING SCALE
     Dates: start: 20070101, end: 20091101
  4. HUMALOG [Suspect]
     Dosage: RESUMED AFTER D/C FROM HOSPITAL; IN HOSP FEW DAYS ;USED ON SLIDING SCALE
     Dates: start: 20091101
  5. APIDRA [Concomitant]
     Indication: TYPE 2 DIABETES MELLITUS
     Dosage: TAKEN FOR FEW DAYS WHILE IN HOSPITAL ON SLIDING SCALE
     Dates: start: 20091101, end: 20091101

REACTIONS (1)
  - GASTRIC CANCER [None]
